FAERS Safety Report 17489498 (Version 1)
Quarter: 2020Q1

REPORT INFORMATION
  Report Type: Spontaneous
  Country: US (occurrence: US)
  Receive Date: 20200303
  Receipt Date: 20200303
  Transmission Date: 20200409
  Serious: Yes (Other)
  Sender: FDA-Public Use
  Company Number: None

PATIENT
  Age: 80 Year
  Sex: Female
  Weight: 63 kg

DRUGS (5)
  1. MULTIVITAMIN [Concomitant]
     Active Substance: VITAMINS
  2. VITAMIN B2 [Concomitant]
     Active Substance: RIBOFLAVIN
  3. METAMUCIL [Concomitant]
     Active Substance: PLANTAGO SEED
  4. CALTRATE [Concomitant]
     Active Substance: CALCIUM CARBONATE
  5. DOXYCYCLINE HYCLATE. [Suspect]
     Active Substance: DOXYCYCLINE HYCLATE
     Indication: OCULAR ROSACEA
     Dosage: ?          QUANTITY:60 TABLET(S);?
     Route: 048
     Dates: start: 20200203, end: 20200225

REACTIONS (3)
  - Migraine [None]
  - Constipation [None]
  - Rash [None]

NARRATIVE: CASE EVENT DATE: 20200220
